FAERS Safety Report 25914914 (Version 1)
Quarter: 2025Q4

REPORT INFORMATION
  Report Type: Spontaneous
  Country: CN (occurrence: CN)
  Receive Date: 20251013
  Receipt Date: 20251013
  Transmission Date: 20260117
  Serious: Yes (Disabling, Other)
  Sender: AMGEN
  Company Number: CN-AMGEN-CHNSP2025201742

PATIENT
  Age: 60 Year
  Sex: Male
  Weight: 70 kg

DRUGS (12)
  1. CARFILZOMIB [Suspect]
     Active Substance: CARFILZOMIB
     Indication: Plasma cell myeloma
     Dosage: 36 MILLIGRAM  2/7 DAYS
     Route: 040
     Dates: start: 20250916
  2. CARFILZOMIB [Suspect]
     Active Substance: CARFILZOMIB
     Dosage: 48.6 MILLIGRAM, ON 2/7 DAYS
     Route: 040
     Dates: start: 20250923, end: 20250924
  3. ETOPOSIDE [Suspect]
     Active Substance: ETOPOSIDE
     Indication: Plasma cell myeloma
     Dosage: 0.05 GRAM, QD
     Route: 040
     Dates: start: 20250917, end: 20250920
  4. CYCLOPHOSPHAMIDE [Suspect]
     Active Substance: CYCLOPHOSPHAMIDE
     Indication: Plasma cell myeloma
     Dosage: 0.5 GRAM, QD
     Route: 040
     Dates: start: 20250917, end: 20250920
  5. DOXORUBICIN HYDROCHLORIDE [Suspect]
     Active Substance: DOXORUBICIN HYDROCHLORIDE
     Indication: Plasma cell myeloma
     Dosage: 40 MILLIGRAM
     Route: 040
     Dates: start: 20250918, end: 20250918
  6. CISPLATIN [Suspect]
     Active Substance: CISPLATIN
     Indication: Plasma cell myeloma
     Dosage: 15 MILLIGRAM, QD
     Route: 040
     Dates: start: 20250917, end: 20250920
  7. SODIUM CHLORIDE [Concomitant]
     Active Substance: SODIUM CHLORIDE
     Indication: Product used for unknown indication
     Dosage: 500 MILLILITER, QD IVGTT
     Route: 040
     Dates: start: 20250917
  8. SODIUM CHLORIDE [Concomitant]
     Active Substance: SODIUM CHLORIDE
     Dosage: 500 MILLILITER, QD IVGTT
     Route: 040
  9. SODIUM CHLORIDE [Concomitant]
     Active Substance: SODIUM CHLORIDE
     Dosage: 500 MILLILITER, QD IVGTT
     Route: 040
     Dates: end: 20250920
  10. STERILE WATER [Concomitant]
     Active Substance: WATER
     Indication: Product used for unknown indication
     Dosage: 29 MILLILITER
     Dates: start: 20250916, end: 20250924
  11. DEXTROSE [Concomitant]
     Active Substance: DEXTROSE MONOHYDRATE
     Indication: Product used for unknown indication
     Dosage: 100 MILLILITER IVGTT 2/7 DAYS (9.16-9.17)
     Route: 040
     Dates: start: 20250916
  12. DEXTROSE [Concomitant]
     Active Substance: DEXTROSE MONOHYDRATE
     Dosage: 100 MILLILITER
     Route: 040
     Dates: start: 20250918, end: 20250918

REACTIONS (1)
  - Myelosuppression [Recovering/Resolving]

NARRATIVE: CASE EVENT DATE: 20250925
